FAERS Safety Report 8228111-3 (Version None)
Quarter: 2012Q1

REPORT INFORMATION
  Report Type: 
  Country: None (occurrence: None)
  Receive Date: 20120322
  Receipt Date: 20111222
  Transmission Date: 20120608
  Serious: No
  Sender: FDA-Public Use
  Company Number: US-BRISTOL-MYERS SQUIBB COMPANY-16311771

PATIENT
  Age: 47 Year
  Sex: Female
  Weight: 86 kg

DRUGS (1)
  1. ERBITUX [Suspect]
     Indication: COLON CANCER RECURRENT
     Dosage: RECEIVED APPROX 12 TREATMENTS.
     Dates: start: 20111001

REACTIONS (4)
  - ACNE [None]
  - ECZEMA [None]
  - DRY SKIN [None]
  - SKIN FISSURES [None]
